FAERS Safety Report 16209386 (Version 1)
Quarter: 2019Q2

REPORT INFORMATION
  Report Type: Spontaneous
  Country: FR (occurrence: FR)
  Receive Date: 20190417
  Receipt Date: 20190417
  Transmission Date: 20190711
  Serious: Yes (Other)
  Sender: FDA-Public Use
  Company Number: FR-GILEAD-2019-0402706

PATIENT
  Age: 33 Year
  Sex: Male

DRUGS (1)
  1. TRUVADA [Suspect]
     Active Substance: EMTRICITABINE\TENOFOVIR DISOPROXIL FUMARATE
     Indication: PROPHYLAXIS AGAINST HIV INFECTION
     Dosage: 2 DOSAGE FORM, ONCE
     Route: 048
     Dates: start: 20190203, end: 20190203

REACTIONS (1)
  - Trigeminal neuralgia [Recovering/Resolving]

NARRATIVE: CASE EVENT DATE: 20190203
